FAERS Safety Report 9294912 (Version 1)
Quarter: 2013Q2

REPORT INFORMATION
  Report Type: Report from Study
  Country: US (occurrence: US)
  Receive Date: 20130517
  Receipt Date: 20130517
  Transmission Date: 20140414
  Serious: Yes (Other)
  Sender: FDA-Public Use
  Company Number: US-ROCHE-1225056

PATIENT
  Age: 39 Year
  Sex: Female

DRUGS (3)
  1. MYCOPHENOLATE MOFETIL [Suspect]
     Indication: BIRDSHOT CHORIORETINOPATHY
     Dosage: FOR 12 MONTHS
     Route: 065
  2. CYCLOSPORINE A [Suspect]
     Indication: BIRDSHOT CHORIORETINOPATHY
     Route: 065
  3. PREDNISONE [Concomitant]
     Route: 048

REACTIONS (1)
  - Glomerular filtration rate decreased [Unknown]
